FAERS Safety Report 23901707 (Version 1)
Quarter: 2024Q2

REPORT INFORMATION
  Report Type: Spontaneous
  Country: US (occurrence: None)
  Receive Date: 20240526
  Receipt Date: 20240526
  Transmission Date: 20240715
  Serious: No
  Sender: FDA-Public Use
  Company Number: US-ROCHE-3449531

PATIENT
  Sex: Male
  Weight: 90.8 kg

DRUGS (6)
  1. OCREVUS [Suspect]
     Active Substance: OCRELIZUMAB
     Indication: Relapsing-remitting multiple sclerosis
     Route: 042
  2. OXYBUTYNIN [Concomitant]
     Active Substance: OXYBUTYNIN\OXYBUTYNIN CHLORIDE
  3. TIZANIDINE [Concomitant]
     Active Substance: TIZANIDINE
  4. DALFAMPRIDINE [Concomitant]
     Active Substance: DALFAMPRIDINE
  5. BETASERON [Concomitant]
     Active Substance: INTERFERON BETA-1B
  6. LIPITOR [Concomitant]
     Active Substance: ATORVASTATIN CALCIUM
     Indication: Blood cholesterol increased

REACTIONS (1)
  - B-lymphocyte count decreased [Not Recovered/Not Resolved]
